FAERS Safety Report 8846863 (Version 1)
Quarter: 2012Q4

REPORT INFORMATION
  Report Type: Spontaneous
  Country: US (occurrence: None)
  Receive Date: 20121016
  Receipt Date: 20121016
  Transmission Date: 20130627
  Serious: Yes (Death)
  Sender: FDA-Public Use
  Company Number: 2012AL000088

PATIENT
  Age: 77 Year
  Sex: Male

DRUGS (1)
  1. FOLOTYN [Suspect]
     Indication: LYMPHOMA
     Dosage: 30 MG;QOW; IV
     Route: 042
     Dates: start: 20120824

REACTIONS (1)
  - Death [None]
